FAERS Safety Report 18454937 (Version 1)
Quarter: 2020Q4

REPORT INFORMATION
  Report Type: Spontaneous
  Country: US (occurrence: US)
  Receive Date: 20201102
  Receipt Date: 20201102
  Transmission Date: 20210114
  Serious: Yes (Death, Other)
  Sender: FDA-Public Use
  Company Number: US-FRESENIUS KABI-FK202011517

PATIENT
  Sex: Male

DRUGS (5)
  1. PARACETAMOL/HYDROCODONE BITARTRATE [Suspect]
     Active Substance: ACETAMINOPHEN\HYDROCODONE BITARTRATE
     Indication: PRODUCT USED FOR UNKNOWN INDICATION
     Dosage: UNKNOWN
     Route: 065
  2. MORPHINE SULFATE. [Suspect]
     Active Substance: MORPHINE SULFATE
     Indication: PRODUCT USED FOR UNKNOWN INDICATION
     Dosage: UNKNOWN
     Route: 065
     Dates: end: 2011
  3. TRAMADOL. [Suspect]
     Active Substance: TRAMADOL
     Indication: PRODUCT USED FOR UNKNOWN INDICATION
     Dosage: UNKNOWN
     Route: 065
  4. DILAUDID [Suspect]
     Active Substance: HYDROMORPHONE HYDROCHLORIDE
     Indication: BACK INJURY
     Dosage: UNKNOWN
     Route: 058
     Dates: start: 1997
  5. DILAUDID [Suspect]
     Active Substance: HYDROMORPHONE HYDROCHLORIDE
     Dosage: UNKNOWN
     Route: 058
     Dates: start: 2001

REACTIONS (15)
  - Head injury [Unknown]
  - Spinal fracture [Unknown]
  - Tooth fracture [Unknown]
  - Subdural haemorrhage [Unknown]
  - Walking disability [Unknown]
  - Depression [Unknown]
  - Vascular parkinsonism [Fatal]
  - Incontinence [Unknown]
  - Drug dependence [Unknown]
  - Aphasia [Unknown]
  - Upper limb fracture [Unknown]
  - Eyelid injury [Unknown]
  - Contusion [Fatal]
  - Diabetes mellitus [Unknown]
  - Fall [Unknown]
